FAERS Safety Report 5801164-5 (Version None)
Quarter: 2008Q3

REPORT INFORMATION
  Report Type: 
  Country: None (occurrence: None)
  Receive Date: 20080707
  Receipt Date: 20080701
  Transmission Date: 20090109
  Serious: Yes (Death)
  Sender: FDA-Public Use
  Company Number: PHHY2008GB12617

PATIENT
  Age: 71 Year
  Sex: Female

DRUGS (10)
  1. ZOLEDRONIC ACID [Suspect]
     Indication: OSTEOPOROSIS
     Dosage: UNK
     Route: 042
  2. AMITRIPTYLINE HCL [Concomitant]
  3. ATENOLOL [Concomitant]
  4. FOLIC ACID [Concomitant]
  5. FUROSEMIDE [Concomitant]
  6. HYDROXYCHLOROQUINE SULFATE [Concomitant]
  7. ISOSORBIDE MONONITRATE [Concomitant]
  8. METHOTREXATE [Concomitant]
     Dosage: 2.25MG/DAY
  9. SIMVASTATIN [Concomitant]
     Dosage: 40MG/DAY
  10. SULFASALAZINE [Concomitant]

REACTIONS (1)
  - NEUTROPENIC SEPSIS [None]
